FAERS Safety Report 13132639 (Version 2)
Quarter: 2020Q2

REPORT INFORMATION
  Report Type: Spontaneous
  Country: CA (occurrence: CA)
  Receive Date: 20170120
  Receipt Date: 20200427
  Transmission Date: 20200713
  Serious: Yes (Other)
  Sender: FDA-Public Use
  Company Number: CA-ROCHE-1882150

PATIENT
  Age: 56 Year
  Sex: Female

DRUGS (13)
  1. ENBREL [Suspect]
     Active Substance: ETANERCEPT
     Indication: RHEUMATOID ARTHRITIS
     Route: 058
  2. OMEPRAZOLE. [Concomitant]
     Active Substance: OMEPRAZOLE
  3. SULFASALAZINE. [Suspect]
     Active Substance: SULFASALAZINE
     Indication: PRODUCT USED FOR UNKNOWN INDICATION
     Route: 065
  4. FOLIC ACID. [Concomitant]
     Active Substance: FOLIC ACID
  5. VITAMIN C [Concomitant]
     Active Substance: ASCORBIC ACID
  6. METHOTREXATE SODIUM. [Suspect]
     Active Substance: METHOTREXATE SODIUM
     Route: 065
  7. PREDNISONE. [Concomitant]
     Active Substance: PREDNISONE
  8. METHOTREXATE SODIUM. [Suspect]
     Active Substance: METHOTREXATE SODIUM
     Indication: PRODUCT USED FOR UNKNOWN INDICATION
     Route: 065
  9. ASCORBIC ACID. [Concomitant]
     Active Substance: ASCORBIC ACID
  10. FOLIC ACID. [Concomitant]
     Active Substance: FOLIC ACID
  11. ACTEMRA [Suspect]
     Active Substance: TOCILIZUMAB
     Indication: PRODUCT USED FOR UNKNOWN INDICATION
     Route: 065
  12. SULFASALAZINE. [Suspect]
     Active Substance: SULFASALAZINE
     Route: 065
  13. OMEPRAZOLE SODIUM [Concomitant]
     Active Substance: OMEPRAZOLE SODIUM

REACTIONS (3)
  - Malignant melanoma [Recovered/Resolved]
  - Drug ineffective [Recovered/Resolved]
  - Musculoskeletal disorder [Recovered/Resolved]
